FAERS Safety Report 7681224-7 (Version None)
Quarter: 2011Q3

REPORT INFORMATION
  Report Type: 
  Country: None (occurrence: None)
  Receive Date: 20110812
  Receipt Date: 20110801
  Transmission Date: 20111222
  Serious: Yes (Hospitalization)
  Sender: FDA-Public Use
  Company Number: US-ELI_LILLY_AND_COMPANY-US201108000381

PATIENT
  Age: 25 Year
  Sex: Female

DRUGS (1)
  1. HUMALOG [Suspect]

REACTIONS (1)
  - DIABETIC KETOACIDOSIS [None]
